FAERS Safety Report 12890052 (Version 1)
Quarter: 2016Q4

REPORT INFORMATION
  Report Type: Report from Study
  Country: JP (occurrence: JP)
  Receive Date: 20161027
  Receipt Date: 20161027
  Transmission Date: 20170207
  Serious: Yes (Hospitalization, Other)
  Sender: FDA-Public Use
  Company Number: JP-TEVA-673804ISR

PATIENT
  Age: 73 Year
  Sex: Male
  Weight: 70.6 kg

DRUGS (9)
  1. AMLODIPINE [Concomitant]
     Active Substance: AMLODIPINE BESYLATE
     Dosage: ONGOING
  2. RASAGILINE MESILATE [Suspect]
     Active Substance: RASAGILINE MESYLATE
     Indication: PARKINSON^S DISEASE
     Dosage: .5 MILLIGRAM DAILY; DBPC: RASAGILINE 0.5 MG OR 1 MG OR PLACEBO
     Route: 048
     Dates: start: 20160204, end: 20160617
  3. POSTERISAN [Concomitant]
     Active Substance: LIDOCAINE
     Dosage: ONGOING
  4. SENNOSIDE [Concomitant]
     Active Substance: SENNOSIDES
     Dosage: ONGOING
  5. TRERIEF [Concomitant]
     Active Substance: ZONISAMIDE
     Dosage: ONGOING
     Dates: start: 20150806
  6. MENESIT [Concomitant]
     Active Substance: CARBIDOPA\LEVODOPA
     Dosage: ONGOING
     Dates: start: 20111020
  7. EURAX H [Concomitant]
     Dosage: ONGOING
  8. VENAPASTA [Concomitant]
     Dosage: ONGOING
  9. ARTANE [Concomitant]
     Active Substance: TRIHEXYPHENIDYL HYDROCHLORIDE
     Dosage: ONGOING
     Dates: start: 20130110

REACTIONS (2)
  - Metastases to lymph nodes [Recovered/Resolved]
  - Oesophageal carcinoma [Recovered/Resolved]

NARRATIVE: CASE EVENT DATE: 20160607
